FAERS Safety Report 5178460-0 (Version None)
Quarter: 2006Q4

REPORT INFORMATION
  Report Type: 
  Country: None (occurrence: None)
  Receive Date: 20061218
  Receipt Date: 20060821
  Transmission Date: 20070319
  Serious: No
  Sender: FDA-Public Use
  Company Number: US-AMGEN-KDL190825

PATIENT
  Sex: Female

DRUGS (2)
  1. ENBREL [Suspect]
     Indication: RHEUMATOID ARTHRITIS
     Route: 058
     Dates: start: 20030301
  2. METHOTREXATE [Concomitant]

REACTIONS (7)
  - BLADDER DISORDER [None]
  - EYE DISORDER [None]
  - FALL [None]
  - INFLUENZA LIKE ILLNESS [None]
  - INTESTINAL FUNCTIONAL DISORDER [None]
  - MUSCULAR WEAKNESS [None]
  - TRANSIENT ISCHAEMIC ATTACK [None]
